FAERS Safety Report 21893723 (Version 1)
Quarter: 2023Q1

REPORT INFORMATION
  Report Type: Spontaneous
  Country: BE (occurrence: None)
  Receive Date: 20230121
  Receipt Date: 20230121
  Transmission Date: 20230417
  Serious: Yes (Life-Threatening, Hospitalization, Other)
  Sender: FDA-Public Use
  Company Number: BE-MICRO LABS LIMITED-ML2023-00246

PATIENT
  Age: 58 Year
  Sex: Female

DRUGS (7)
  1. BUPROPION [Suspect]
     Active Substance: BUPROPION
     Indication: Suicide attempt
     Dosage: BUPROPION 150MG 1DD
  2. KETAMINE [Suspect]
     Active Substance: KETAMINE
     Indication: Induction of anaesthesia
     Dosage: INDUCTION
     Route: 042
  3. FENTANYL [Suspect]
     Active Substance: FENTANYL
     Indication: Induction of anaesthesia
     Dosage: 100UG FENTANYL FOR INDUCTION
     Route: 042
  4. EZETIMIBE. [Concomitant]
     Dosage: EZETIMIDE 10MG 1DD
  5. AMLODIPINE [Concomitant]
     Active Substance: AMLODIPINE BESYLATE
     Dosage: AMLODIPINE 10MG 1DD
  6. LEVOTHYROXINE [Concomitant]
     Active Substance: LEVOTHYROXINE
     Dosage: LEVOTHYROXIN 50UG 1DD
  7. ALPRAZOLAM [Concomitant]
     Active Substance: ALPRAZOLAM
     Dosage: ALPRAZOLAM 0.25MG IF NEEDED

REACTIONS (12)
  - Respiratory acidosis [Unknown]
  - Metabolic acidosis [Unknown]
  - Hypoxia [Recovered/Resolved]
  - Acute kidney injury [Unknown]
  - Hypothermia [Recovered/Resolved]
  - Drug interaction [Unknown]
  - Suicide attempt [Unknown]
  - Hypotension [Recovered/Resolved]
  - Agitation [Recovered/Resolved]
  - Mydriasis [Recovered/Resolved]
  - Dyskinesia [Recovered/Resolved]
  - Intentional overdose [Unknown]
